FAERS Safety Report 22385850 (Version 1)
Quarter: 2023Q2

REPORT INFORMATION
  Report Type: Spontaneous
  Country: CH (occurrence: CH)
  Receive Date: 20230530
  Receipt Date: 20230530
  Transmission Date: 20230721
  Serious: Yes (Other)
  Sender: FDA-Public Use
  Company Number: CH-RECORDATI-2023002988

PATIENT
  Sex: Female
  Weight: 80 kg

DRUGS (4)
  1. CARIPRAZINE HYDROCHLORIDE [Suspect]
     Active Substance: CARIPRAZINE HYDROCHLORIDE
     Indication: Schizophrenia
     Dosage: 1.5 MG, QD
     Route: 048
     Dates: start: 20230111, end: 20230118
  2. ABILIFY [Concomitant]
     Active Substance: ARIPIPRAZOLE
     Indication: Schizophrenia
     Dosage: 10 MG, QD
     Dates: start: 2017
  3. ESCITALOPRAM [Concomitant]
     Active Substance: ESCITALOPRAM OXALATE
     Indication: Schizophrenia
     Dosage: 10 MG, QD
     Dates: start: 2017
  4. PIPAMPERONE [Concomitant]
     Active Substance: PIPAMPERONE
     Indication: Schizophrenia
     Dosage: 20 MG, BID
     Dates: start: 202303

REACTIONS (1)
  - Hypertensive crisis [Recovered/Resolved]

NARRATIVE: CASE EVENT DATE: 20230101
